FAERS Safety Report 23423491 (Version 1)
Quarter: 2024Q1

REPORT INFORMATION
  Report Type: Spontaneous
  Country: US (occurrence: US)
  Receive Date: 20240119
  Receipt Date: 20240119
  Transmission Date: 20240410
  Serious: Yes (Disabling, Other)
  Sender: FDA-Public Use
  Company Number: US-PFIZER INC-202400011728

PATIENT
  Sex: Female

DRUGS (1)
  1. NURTEC ODT [Suspect]
     Active Substance: RIMEGEPANT SULFATE
     Indication: Migraine with aura
     Dosage: UNK

REACTIONS (8)
  - Epilepsy [Unknown]
  - Brain operation [Unknown]
  - Fall [Unknown]
  - Craniofacial fracture [Unknown]
  - Nose deformity [Unknown]
  - Loss of personal independence in daily activities [Unknown]
  - Nervous system disorder [Unknown]
  - Memory impairment [Unknown]

NARRATIVE: CASE EVENT DATE: 20230101
